FAERS Safety Report 9026925 (Version 2)
Quarter: 2014Q1

REPORT INFORMATION
  Report Type: Spontaneous
  Country: US (occurrence: US)
  Receive Date: 20130123
  Receipt Date: 20140121
  Transmission Date: 20141002
  Serious: No
  Sender: FDA-Public Use
  Company Number: US-PFIZER INC-2013023955

PATIENT
  Sex: Female

DRUGS (1)
  1. LYRICA [Suspect]
     Indication: POST HERPETIC NEURALGIA
     Dosage: UNK

REACTIONS (3)
  - Somnolence [Unknown]
  - Pain in extremity [Unknown]
  - Alopecia [Unknown]
